FAERS Safety Report 5470572-7 (Version None)
Quarter: 2007Q3

REPORT INFORMATION
  Report Type: 
  Country: None (occurrence: None)
  Receive Date: 20070928
  Receipt Date: 20070925
  Transmission Date: 20080115
  Serious: Yes (Life-Threatening, Hospitalization)
  Sender: FDA-Public Use
  Company Number: PHBS2007JP13315

PATIENT
  Age: 77 Year
  Sex: Female

DRUGS (7)
  1. TEGRETOL [Suspect]
     Indication: SUBDURAL HAEMATOMA
     Dosage: 200 MG/DAY
     Route: 048
     Dates: start: 19950101, end: 20070309
  2. PHYSIO 35 [Concomitant]
  3. PANTOSIN [Concomitant]
  4. LEVOFLOXACIN [Concomitant]
     Indication: URINARY TRACT INFECTION
     Dosage: 300 MG/DAY
     Route: 048
     Dates: start: 20070301, end: 20070303
  5. CEFMETAZON [Concomitant]
     Indication: URINARY TRACT INFECTION
     Dosage: 2 G/DAY
     Route: 042
     Dates: start: 20070304, end: 20070316
  6. MAGMITT KENEI [Concomitant]
     Indication: CONSTIPATION
     Dosage: 2 G/DAY
     Route: 048
  7. SENNOSIDE [Concomitant]
     Indication: CONSTIPATION
     Dosage: 0.3 G/DAY
     Route: 048

REACTIONS (14)
  - DISSEMINATED INTRAVASCULAR COAGULATION [None]
  - DRUG HYPERSENSITIVITY [None]
  - FIBRIN D DIMER INCREASED [None]
  - FIBRIN DEGRADATION PRODUCTS INCREASED [None]
  - GASTROINTESTINAL HAEMORRHAGE [None]
  - HAEMATURIA [None]
  - HAEMOGLOBIN DECREASED [None]
  - HAEMORRHAGE SUBCUTANEOUS [None]
  - HAEMORRHAGIC DIATHESIS [None]
  - PETECHIAE [None]
  - PLATELET COUNT DECREASED [None]
  - PYREXIA [None]
  - URINARY TRACT INFECTION [None]
  - WHITE BLOOD CELL COUNT INCREASED [None]
